FAERS Safety Report 15865064 (Version 1)
Quarter: 2019Q1

REPORT INFORMATION
  Report Type: Spontaneous
  Country: US (occurrence: US)
  Receive Date: 20190124
  Receipt Date: 20190124
  Transmission Date: 20190417
  Serious: No
  Sender: FDA-Public Use
  Company Number: US-SHIRE-US201902052

PATIENT
  Age: 48 Year
  Sex: Male
  Weight: 99.77 kg

DRUGS (1)
  1. CARBATROL [Suspect]
     Active Substance: CARBAMAZEPINE
     Indication: SEIZURE
     Dosage: 300 MILLIGRAM, 2X/DAY:BID
     Route: 048
     Dates: start: 2003

REACTIONS (2)
  - Asthenia [Recovered/Resolved]
  - Feeling abnormal [Recovered/Resolved]

NARRATIVE: CASE EVENT DATE: 201811
